FAERS Safety Report 4811306-6 (Version None)
Quarter: 2005Q4

REPORT INFORMATION
  Report Type: 
  Country: None (occurrence: None)
  Receive Date: 20051026
  Receipt Date: 20051026
  Transmission Date: 20060501
  Serious: Yes (Life-Threatening, Hospitalization)
  Sender: FDA-Public Use
  Company Number: None

PATIENT
  Age: 57 Year
  Sex: Male
  Weight: 87.0906 kg

DRUGS (2)
  1. CELECOXIB    200 MG    PFIZER [Suspect]
     Indication: LUNG NEOPLASM MALIGNANT
     Dosage: 2 CAPS  BID   PO
     Route: 048
     Dates: start: 20050505, end: 20051007
  2. CELECOXIB    200 MG    PFIZER [Suspect]
     Indication: PROPHYLAXIS
     Dosage: 2 CAPS  BID   PO
     Route: 048
     Dates: start: 20050505, end: 20051007

REACTIONS (3)
  - CHEST DISCOMFORT [None]
  - CORONARY ARTERY STENOSIS [None]
  - EXERCISE TOLERANCE DECREASED [None]
